FAERS Safety Report 8901086 (Version 2)
Quarter: 2012Q4

REPORT INFORMATION
  Report Type: 
  Country: GB (occurrence: GB)
  Receive Date: 20121109
  Receipt Date: 20121218
  Transmission Date: 20130627
  Serious: Yes (Death, Hospitalization, Other)
  Sender: FDA-Public Use
  Company Number: GB-ROCHE-1104720

PATIENT
  Age: 59 Year
  Sex: Female
  Weight: 75 kg

DRUGS (2)
  1. TOCILIZUMAB [Suspect]
     Indication: RHEUMATOID ARTHRITIS
     Route: 042
     Dates: start: 20111215, end: 20120713
  2. WARFARIN [Concomitant]

REACTIONS (7)
  - Diverticular perforation [Fatal]
  - Abdominal pain [Unknown]
  - Abscess rupture [Not Recovered/Not Resolved]
  - C-reactive protein increased [Unknown]
  - Deep vein thrombosis [Unknown]
  - Diverticulum intestinal [Unknown]
  - Sepsis [Not Recovered/Not Resolved]
